FAERS Safety Report 7483764-2 (Version None)
Quarter: 2011Q2

REPORT INFORMATION
  Report Type: 
  Country: None (occurrence: None)
  Receive Date: 20110517
  Receipt Date: 20110509
  Transmission Date: 20111010
  Serious: Yes (Other)
  Sender: FDA-Public Use
  Company Number: PHFR2004GB04601

PATIENT
  Sex: Male

DRUGS (4)
  1. CLOZARIL [Suspect]
     Dosage: UNK
     Route: 048
     Dates: start: 20070129
  2. LANSOPRAZOLE [Suspect]
     Indication: REFLUX OESOPHAGITIS
     Dosage: 15MG/DAY
     Route: 048
     Dates: start: 20031001
  3. OXAZEPAM [Concomitant]
     Indication: ANXIETY
     Dosage: 10MG/DAY
     Route: 048
     Dates: start: 20010627
  4. CLOZARIL [Suspect]
     Dosage: UNK
     Route: 048
     Dates: start: 19971110

REACTIONS (4)
  - CIRRHOSIS ALCOHOLIC [None]
  - HEPATITIS C VIRUS TEST POSITIVE [None]
  - RASH [None]
  - THROMBOCYTOPENIA [None]
